FAERS Safety Report 5316916-8 (Version None)
Quarter: 2007Q2

REPORT INFORMATION
  Report Type: 
  Country: None (occurrence: None)
  Receive Date: 20070501
  Receipt Date: 20070501
  Transmission Date: 20071010
  Serious: Yes (Hospitalization)
  Sender: FDA-Public Use
  Company Number: None

PATIENT
  Sex: Male
  Weight: 75.7507 kg

DRUGS (5)
  1. THALOMID [Suspect]
     Indication: BLADDER TRANSITIONAL CELL CARCINOMA
     Dosage: 100 MG  QHS  PO
     Route: 048
     Dates: start: 20070302, end: 20070426
  2. TEMODAR [Suspect]
     Indication: BLADDER TRANSITIONAL CELL CARCINOMA
     Dosage: 100 MG  QHS  PO
     Route: 048
     Dates: start: 20070309, end: 20070426
  3. METHADONE HCL [Concomitant]
  4. ZOFRAN [Concomitant]
  5. COUMADIN [Concomitant]

REACTIONS (2)
  - SMALL INTESTINAL OBSTRUCTION [None]
  - URINARY TRACT INFECTION [None]
